FAERS Safety Report 9097470 (Version 1)
Quarter: 2013Q1

REPORT INFORMATION
  Report Type: Spontaneous
  Country: GB (occurrence: GB)
  Receive Date: 20130212
  Receipt Date: 20130212
  Transmission Date: 20140127
  Serious: Yes (Other)
  Sender: FDA-Public Use
  Company Number: GB-ABBOTT-13P-167-1046493-00

PATIENT
  Age: 8 Year
  Sex: Male

DRUGS (1)
  1. VALPROATE [Suspect]
     Indication: EPILEPSY

REACTIONS (3)
  - Renal tubular disorder [Recovered/Resolved]
  - Status epilepticus [Recovered/Resolved]
  - Tetany [Recovered/Resolved]
